FAERS Safety Report 22957655 (Version 2)
Quarter: 2023Q4

REPORT INFORMATION
  Report Type: Spontaneous
  Country: None (occurrence: US)
  Receive Date: 20230919
  Receipt Date: 20231130
  Transmission Date: 20240110
  Serious: Yes (Disabling)
  Sender: FDA-Public Use
  Company Number: US-Imprimis NJOF, LLC-2146130

PATIENT
  Sex: Female

DRUGS (1)
  1. CYCLOSPORINE/CHONDROITIN SULFATE PF [Suspect]
     Active Substance: CYCLOSPORINE
     Indication: Dry eye
     Route: 047
     Dates: start: 20230830, end: 20230903

REACTIONS (1)
  - Visual impairment [Not Recovered/Not Resolved]
